FAERS Safety Report 21571684 (Version 1)
Quarter: 2022Q4

REPORT INFORMATION
  Report Type: Spontaneous
  Country: US (occurrence: None)
  Receive Date: 20221107
  Receipt Date: 20221107
  Transmission Date: 20230113
  Serious: Yes (Hospitalization)
  Sender: FDA-Public Use
  Company Number: None

PATIENT
  Sex: Male

DRUGS (22)
  1. SPRAVATO [Suspect]
     Active Substance: ESKETAMINE
     Indication: Major depression
     Dosage: FREQUENCY : WEEKLY;?ADMINISTER 84MG INTRANASALLY ONCE A WEEK?
     Route: 045
     Dates: start: 20220402
  2. ARIPIPRAZOLE TAB 10MG [Concomitant]
  3. ARIPIPRAZOLE TAB 5MG [Concomitant]
  4. BUPROPN HCL TAB 150MG XL [Concomitant]
  5. BUPROPION HYDROCHLORIDE [Concomitant]
     Active Substance: BUPROPION HYDROCHLORIDE
  6. CLONAZEPAM TAB 0.5MG [Concomitant]
  7. CLONAZEPAM [Concomitant]
     Active Substance: CLONAZEPAM
  8. DEXAMETHASONE PHOSPHATE [Concomitant]
     Active Substance: DEXAMETHASONE PHOSPHATE
  9. ESCITALOPRAM [Concomitant]
     Active Substance: ESCITALOPRAM OXALATE
  10. ESCITALOPRAM TAB 20MG [Concomitant]
  11. ESCITALOPRAM TAB 5MG [Concomitant]
  12. ACETAMINOPHEN\HYDROCODONE [Concomitant]
     Active Substance: ACETAMINOPHEN\HYDROCODONE
  13. HYDROXYZ HCL TAB 25MG [Concomitant]
  14. HYDROXYZ HCL TAB 50MG [Concomitant]
  15. HYDROXYZ PAM CAP 50MG [Concomitant]
  16. LAMOTRIGINE [Concomitant]
     Active Substance: LAMOTRIGINE
  17. PROPRANOLOL TAB 10MG [Concomitant]
  18. QUETIAPINE TAB 25MG [Concomitant]
  19. QUETIAPINE TAB 50MG ER [Concomitant]
  20. SERTRALINE [Concomitant]
     Active Substance: SERTRALINE HYDROCHLORIDE
  21. SILDENAFIL TAB 100MG [Concomitant]
  22. TRAZODONE [Concomitant]
     Active Substance: TRAZODONE HYDROCHLORIDE

REACTIONS (1)
  - Hospitalisation [None]

NARRATIVE: CASE EVENT DATE: 20221101
